FAERS Safety Report 6039094-9 (Version None)
Quarter: 2009Q1

REPORT INFORMATION
  Report Type: 
  Country: None (occurrence: None)
  Receive Date: 20090115
  Receipt Date: 20090115
  Transmission Date: 20090719
  Serious: Yes (Other)
  Sender: FDA-Public Use
  Company Number: US-RB-000745-08

PATIENT
  Sex: Female

DRUGS (2)
  1. SUBUTEX [Suspect]
     Route: 060
     Dates: start: 20080412
  2. SUBOXONE [Suspect]
     Route: 060
     Dates: start: 20060519, end: 20080411

REACTIONS (4)
  - ABORTION SPONTANEOUS [None]
  - ANXIETY [None]
  - DEPRESSION [None]
  - DRUG EXPOSURE DURING PREGNANCY [None]
